FAERS Safety Report 9160377 (Version 1)
Quarter: 2013Q1

REPORT INFORMATION
  Report Type: Spontaneous
  Country: CN (occurrence: CN)
  Receive Date: 20130313
  Receipt Date: 20130313
  Transmission Date: 20140127
  Serious: No
  Sender: FDA-Public Use
  Company Number: CN-JNJFOC-20130303369

PATIENT
  Sex: 0

DRUGS (3)
  1. FENTANYL [Suspect]
     Indication: PAIN
     Route: 062
  2. FENTANYL [Suspect]
     Indication: PAIN
     Route: 062
  3. MORPHINE [Suspect]
     Indication: PAIN
     Route: 030

REACTIONS (7)
  - Nausea [Unknown]
  - Vomiting [Unknown]
  - Dizziness [Unknown]
  - Constipation [Unknown]
  - Urinary retention [Unknown]
  - Pruritus [Unknown]
  - Inappropriate schedule of drug administration [Unknown]
